FAERS Safety Report 13775922 (Version 1)
Quarter: 2017Q3

REPORT INFORMATION
  Report Type: Spontaneous
  Country: US (occurrence: US)
  Receive Date: 20170721
  Receipt Date: 20170721
  Transmission Date: 20171127
  Serious: Yes (Other)
  Sender: FDA-Public Use
  Company Number: US-JNJFOC-20170707822

PATIENT
  Age: 65 Year
  Sex: Female
  Weight: 86.18 kg

DRUGS (1)
  1. BENADRYL ALLERGY [Suspect]
     Active Substance: DIPHENHYDRAMINE HYDROCHLORIDE
     Indication: RASH PRURITIC
     Dosage: 1-2 TABLET, AS NEEDED
     Route: 048
     Dates: start: 20170709, end: 20170709

REACTIONS (5)
  - Product use in unapproved indication [Not Recovered/Not Resolved]
  - Nephrolithiasis [Not Recovered/Not Resolved]
  - Off label use [Not Recovered/Not Resolved]
  - Polyuria [Not Recovered/Not Resolved]
  - Urinary retention [Not Recovered/Not Resolved]

NARRATIVE: CASE EVENT DATE: 20170709
